FAERS Safety Report 12737995 (Version 2)
Quarter: 2018Q2

REPORT INFORMATION
  Report Type: Spontaneous
  Country: US (occurrence: US)
  Receive Date: 20160912
  Receipt Date: 20180515
  Transmission Date: 20180711
  Serious: Yes (Other)
  Sender: FDA-Public Use
  Company Number: US-SA-2016SA113241

PATIENT
  Age: 68 Year
  Sex: Male
  Weight: 78.47 kg

DRUGS (8)
  1. COREG [Concomitant]
     Active Substance: CARVEDILOL
     Indication: HYPERTENSION
     Dosage: STARTED 4-5 YEARS AGO
  2. TOUJEO [Suspect]
     Active Substance: INSULIN GLARGINE
     Indication: TYPE 1 DIABETES MELLITUS
     Dosage: DOSE: 12-40 UNITS
     Route: 065
     Dates: start: 20160228, end: 20160621
  3. NEURONTIN [Concomitant]
     Active Substance: GABAPENTIN
     Indication: PAIN
  4. LISINOPRIL. [Concomitant]
     Active Substance: LISINOPRIL
     Indication: HYPERTENSION
     Dosage: STARTED 4-5 YEARS AGO
  5. AFREZZA [Concomitant]
     Active Substance: INSULIN HUMAN
     Indication: DIABETES MELLITUS
     Route: 065
     Dates: start: 20160228, end: 20160621
  6. SOLOSTAR [Concomitant]
     Active Substance: DEVICE
     Dates: start: 201604
  7. LISINOPRIL. [Concomitant]
     Active Substance: LISINOPRIL
     Indication: NEPHROPROTECTIVE THERAPY
     Dosage: STARTED 4-5 YEARS AGO
  8. CRESTOR [Concomitant]
     Active Substance: ROSUVASTATIN CALCIUM
     Indication: BLOOD CHOLESTEROL
     Dosage: STARTED 4-5 YEARS AGO

REACTIONS (3)
  - Drug ineffective [Unknown]
  - Hypoglycaemia [Unknown]
  - Blood glucose increased [Recovered/Resolved]
